FAERS Safety Report 6712691-0 (Version None)
Quarter: 2010Q2

REPORT INFORMATION
  Report Type: 
  Country: None (occurrence: None)
  Receive Date: 20100505
  Receipt Date: 20100505
  Transmission Date: 20101027
  Serious: Yes (Other)
  Sender: FDA-Public Use
  Company Number: None

PATIENT
  Age: 66 Year
  Sex: Male

DRUGS (10)
  1. LUNESTA [Suspect]
     Dosage: 3 MG ONCE NIGHTLY PO
     Route: 048
     Dates: start: 20100416, end: 20100421
  2. ASPIRIN [Concomitant]
  3. NIACIN [Concomitant]
  4. REMERON [Concomitant]
  5. PRAVASTATIN [Concomitant]
  6. LITHIUM CARBONATE [Concomitant]
  7. CELEXA [Concomitant]
  8. METOPROLOL [Concomitant]
  9. VITAMIN C [Concomitant]
  10. VITAMIN E [Concomitant]

REACTIONS (1)
  - INSOMNIA [None]
